FAERS Safety Report 7655366-6 (Version None)
Quarter: 2011Q3

REPORT INFORMATION
  Report Type: 
  Country: None (occurrence: None)
  Receive Date: 20110804
  Receipt Date: 20110725
  Transmission Date: 20111222
  Serious: No
  Sender: FDA-Public Use
  Company Number: US-JNJFOC-20110706739

PATIENT
  Sex: Male
  Weight: 83.92 kg

DRUGS (1)
  1. FENTANYL [Suspect]
     Indication: BACK PAIN
     Dosage: NDC#0781-7241-55
     Route: 062
     Dates: start: 20110701

REACTIONS (6)
  - DRUG INEFFECTIVE [None]
  - PRODUCT PHYSICAL ISSUE [None]
  - SKIN ODOUR ABNORMAL [None]
  - PRODUCT QUALITY ISSUE [None]
  - WRONG TECHNIQUE IN DRUG USAGE PROCESS [None]
  - PRODUCT ADHESION ISSUE [None]
